FAERS Safety Report 10032935 (Version 2)
Quarter: 2014Q3

REPORT INFORMATION
  Report Type: Report from Study
  Country: US (occurrence: US)
  Receive Date: 20140324
  Receipt Date: 20140704
  Transmission Date: 20150326
  Serious: Yes (Hospitalization, Other)
  Sender: FDA-Public Use
  Company Number: PHEH2014US005652

PATIENT
  Sex: Female
  Weight: 58.6 kg

DRUGS (1)
  1. SANDOSTATIN LAR DEPOT [Suspect]
     Active Substance: OCTREOTIDE ACETATE
     Indication: DIARRHOEA
     Dosage: UNK UKN, WEEKLY
     Route: 030
     Dates: start: 20140415, end: 20140515

REACTIONS (3)
  - Confusional state [Unknown]
  - Overdose [Unknown]
  - Diarrhoea [Unknown]
